FAERS Safety Report 20193506 (Version 2)
Quarter: 2023Q4

REPORT INFORMATION
  Report Type: Report from Study
  Country: US (occurrence: US)
  Receive Date: 20211216
  Receipt Date: 20231116
  Transmission Date: 20240110
  Serious: Yes (Other)
  Sender: FDA-Public Use
  Company Number: US-TAKEDA-US201933600

PATIENT
  Age: 86 Year
  Sex: Female
  Weight: 86 kg

DRUGS (6)
  1. ICATIBANT [Suspect]
     Active Substance: ICATIBANT ACETATE
     Indication: Immune system disorder
     Dosage: 30 MILLIGRAM, PRN
     Route: 058
     Dates: start: 20190607
  2. ICATIBANT [Suspect]
     Active Substance: ICATIBANT ACETATE
     Indication: Immune system disorder
     Dosage: 30 MILLIGRAM, PRN
     Route: 058
     Dates: start: 20190607
  3. TAKHZYRO [Suspect]
     Active Substance: LANADELUMAB-FLYO
     Indication: Hereditary angioedema
     Dosage: 300 MILLIGRAM, Q2WEEKS
     Route: 058
  4. ACETAMINOPHEN\HYDROCODONE [Concomitant]
     Active Substance: ACETAMINOPHEN\HYDROCODONE
     Indication: Product used for unknown indication
  5. TYLENOL [Concomitant]
     Active Substance: ACETAMINOPHEN
     Indication: Product used for unknown indication
  6. CITRUCEL [Concomitant]
     Active Substance: METHYLCELLULOSE (4000 CPS)\METHYLCELLULOSE (4000 MPA.S)
     Indication: Product used for unknown indication

REACTIONS (5)
  - Abdominal pain upper [Recovering/Resolving]
  - Hereditary angioedema [Unknown]
  - Fall [Unknown]
  - Head injury [Unknown]
  - Product availability issue [Unknown]

NARRATIVE: CASE EVENT DATE: 20211210
